FAERS Safety Report 7050024-3 (Version None)
Quarter: 2010Q4

REPORT INFORMATION
  Report Type: 
  Country: None (occurrence: None)
  Receive Date: 20101018
  Receipt Date: 20100930
  Transmission Date: 20110411
  Serious: Yes (Hospitalization)
  Sender: FDA-Public Use
  Company Number: US-BAYER-201036826NA

PATIENT
  Age: 22 Year
  Sex: Female
  Weight: 50 kg

DRUGS (3)
  1. YASMIN [Suspect]
     Indication: CONTRACEPTION
     Route: 048
     Dates: start: 20050101, end: 20090101
  2. OCELLA [Suspect]
     Indication: CONTRACEPTION
     Dates: start: 20050101, end: 20090101
  3. IBUPROFEN [Concomitant]
     Indication: MUSCLE SPASMS
     Dosage: TOOK OFTEN
     Dates: start: 19990101

REACTIONS (2)
  - CHEST PAIN [None]
  - GALLBLADDER DISORDER [None]
